FAERS Safety Report 5590878-0 (Version None)
Quarter: 2008Q1

REPORT INFORMATION
  Report Type: 
  Country: None (occurrence: None)
  Receive Date: 20080115
  Receipt Date: 20080114
  Transmission Date: 20080703
  Serious: Yes (Other)
  Sender: FDA-Public Use
  Company Number: DE-SP-2007-04243

PATIENT
  Age: 72 Year
  Sex: Male

DRUGS (1)
  1. IMMUCYST [Suspect]
     Indication: BLADDER CANCER
     Route: 065
     Dates: start: 20070301, end: 20070601

REACTIONS (2)
  - ORCHITIS [None]
  - SCROTAL DISORDER [None]
